FAERS Safety Report 7498844-5 (Version None)
Quarter: 2011Q2

REPORT INFORMATION
  Report Type: 
  Country: None (occurrence: None)
  Receive Date: 20110516
  Receipt Date: 20110510
  Transmission Date: 20111010
  Serious: Yes (Other)
  Sender: FDA-Public Use
  Company Number: MYVW-PR-1105S-0081

PATIENT
  Sex: Female

DRUGS (3)
  1. PERSANTINE [Concomitant]
  2. TECHNETIUM 99M GENERATOR (SODIUM PERTECHNETATE TC99M) [Concomitant]
  3. MYOVIEW [Suspect]
     Indication: PRODUCT USED FOR UNKNOWN INDICATION
     Dosage: NR, SINGLE DOSE;
     Dates: start: 20110509, end: 20110509

REACTIONS (1)
  - PANCREATITIS ACUTE [None]
